FAERS Safety Report 9213319 (Version 2)
Quarter: 2013Q2

REPORT INFORMATION
  Report Type: Spontaneous
  Country: CH (occurrence: CH)
  Receive Date: 20130405
  Receipt Date: 20130409
  Transmission Date: 20140414
  Serious: No
  Sender: FDA-Public Use
  Company Number: PHHY2013CH032443

PATIENT
  Sex: Male

DRUGS (1)
  1. SANDIMMUN NEORAL / OL [Suspect]
     Dosage: 175 MG, BID
     Route: 048
     Dates: start: 201208

REACTIONS (1)
  - Urine analysis abnormal [Unknown]
